FAERS Safety Report 6066206-3 (Version None)
Quarter: 2009Q1

REPORT INFORMATION
  Report Type: 
  Country: None (occurrence: None)
  Receive Date: 20090205
  Receipt Date: 20090130
  Transmission Date: 20090719
  Serious: Yes (Hospitalization, Other)
  Sender: FDA-Public Use
  Company Number: PHHY2008DE28923

PATIENT
  Age: 80 Year
  Sex: Male
  Weight: 100 kg

DRUGS (8)
  1. DIOVAN [Suspect]
     Indication: HYPERTENSION
     Dosage: 1 DF, BID
     Dates: start: 20080801
  2. DIOVAN [Suspect]
     Dosage: 1 DF, QD
     Dates: start: 20080101, end: 20080101
  3. DIOVAN [Suspect]
     Dosage: 0.5 DF, QD
     Dates: start: 20080101, end: 20080101
  4. DIOVAN [Suspect]
     Dosage: 1 DF, QD
  5. MARCUMAR [Suspect]
     Dosage: 4 DF/DAY
  6. METFORMIN SANDOZ [Concomitant]
     Dosage: 500 MG
  7. LISI-PUREN [Concomitant]
  8. DICLOFENAC RETARD HEXAL [Concomitant]

REACTIONS (5)
  - CIRCULATORY COLLAPSE [None]
  - CONFUSIONAL STATE [None]
  - FATIGUE [None]
  - HERPES ZOSTER [None]
  - HYPOTENSION [None]
